FAERS Safety Report 17409734 (Version 1)
Quarter: 2020Q1

REPORT INFORMATION
  Report Type: Spontaneous
  Country: US (occurrence: US)
  Receive Date: 20200212
  Receipt Date: 20200212
  Transmission Date: 20200409
  Serious: No
  Sender: FDA-Public Use
  Company Number: US-JNJFOC-20200214106

PATIENT
  Age: 18 Year
  Sex: Female
  Weight: 47.67 kg

DRUGS (1)
  1. STELARA [Suspect]
     Active Substance: USTEKINUMAB
     Indication: PRODUCT USED FOR UNKNOWN INDICATION
     Route: 058
     Dates: start: 2019

REACTIONS (3)
  - Self-medication [Unknown]
  - Product storage error [Unknown]
  - Medication error [Unknown]

NARRATIVE: CASE EVENT DATE: 20200204
